FAERS Safety Report 4690829-7 (Version None)
Quarter: 2005Q2

REPORT INFORMATION
  Report Type: 
  Country: None (occurrence: None)
  Receive Date: 20050615
  Receipt Date: 20040820
  Transmission Date: 20051028
  Serious: Yes (Other)
  Sender: FDA-Public Use
  Company Number: US-JNJFOC-20040200796

PATIENT
  Sex: Female
  Weight: 80.29 kg

DRUGS (13)
  1. INFLIXIMAB [Suspect]
     Route: 042
  2. INFLIXIMAB [Suspect]
     Route: 042
  3. INFLIXIMAB [Suspect]
     Route: 042
  4. INFLIXIMAB [Suspect]
     Route: 042
  5. INFLIXIMAB [Suspect]
     Route: 042
  6. INFLIXIMAB [Suspect]
     Route: 042
  7. INFLIXIMAB [Suspect]
     Route: 042
  8. INFLIXIMAB [Suspect]
     Indication: CROHN'S DISEASE
     Route: 042
  9. AZATHIOPRINE [Concomitant]
     Indication: CROHN'S DISEASE
  10. MESALAMINE [Concomitant]
     Indication: CROHN'S DISEASE
  11. ANTISPASMODIC [Concomitant]
     Indication: CROHN'S DISEASE
  12. ACETAMINOPHEN [Concomitant]
  13. ANTI-HISTAMINE TAB [Concomitant]

REACTIONS (2)
  - CELLULITIS [None]
  - CROHN'S DISEASE [None]
